FAERS Safety Report 9952959 (Version 1)
Quarter: 2014Q1

REPORT INFORMATION
  Report Type: Report from Study
  Country: US (occurrence: US)
  Receive Date: 20140304
  Receipt Date: 20140304
  Transmission Date: 20141002
  Serious: No
  Sender: FDA-Public Use
  Company Number: US-ABBVIE-13P-163-1078499-00

PATIENT
  Sex: Female
  Weight: 79.45 kg

DRUGS (14)
  1. HUMIRA [Suspect]
     Indication: PSORIATIC ARTHROPATHY
     Dates: start: 200901
  2. ADDERALL [Concomitant]
     Indication: PRODUCT USED FOR UNKNOWN INDICATION
  3. ALEVE [Concomitant]
     Indication: PAIN
  4. ALPRAZOLAM [Concomitant]
     Indication: ANXIETY
  5. CARTIA [Concomitant]
     Indication: PRODUCT USED FOR UNKNOWN INDICATION
  6. DHEA [Concomitant]
     Indication: SUPPLEMENTATION THERAPY
  7. FOLIC ACID [Concomitant]
     Indication: VITAMIN SUPPLEMENTATION
  8. LAMICTAL [Concomitant]
     Indication: PRODUCT USED FOR UNKNOWN INDICATION
  9. LISINOPRIL [Concomitant]
     Indication: HYPERTENSION
  10. MOBIC [Concomitant]
     Indication: PAIN
  11. STOOL SOFTNER (UNKNOWN) [Concomitant]
     Indication: CONSTIPATION
  12. TRAZODONE [Concomitant]
     Indication: DEPRESSION
  13. VITAMIN D [Concomitant]
     Indication: VITAMIN SUPPLEMENTATION
  14. WELLBUTRIN [Concomitant]
     Indication: DEPRESSION

REACTIONS (1)
  - Injection site pain [Recovered/Resolved]
